FAERS Safety Report 6386032-5 (Version None)
Quarter: 2009Q4

REPORT INFORMATION
  Report Type: 
  Country: None (occurrence: None)
  Receive Date: 20091002
  Receipt Date: 20081106
  Transmission Date: 20100525
  Serious: No
  Sender: FDA-Public Use
  Company Number: US-ASTRAZENECA-2008UW24851

PATIENT
  Sex: Female

DRUGS (2)
  1. ARIMIDEX [Suspect]
     Indication: BREAST CANCER
     Dosage: UNKNOWN
     Route: 048
     Dates: start: 20080801, end: 20081030
  2. ESTRACE [Concomitant]
     Route: 067

REACTIONS (3)
  - ACNE [None]
  - EMOTIONAL DISORDER [None]
  - ILL-DEFINED DISORDER [None]
